FAERS Safety Report 25261014 (Version 2)
Quarter: 2025Q3

REPORT INFORMATION
  Report Type: Spontaneous
  Country: US (occurrence: US)
  Receive Date: 20250501
  Receipt Date: 20250731
  Transmission Date: 20251020
  Serious: No
  Sender: Tarsus Pharmaceuticals
  Company Number: US-TARSUS PHARMACEUTICALS-TSP-US-2025-000326

PATIENT

DRUGS (3)
  1. XDEMVY [Suspect]
     Active Substance: LOTILANER
     Indication: Ocular demodicosis
     Route: 065
     Dates: start: 20250311, end: 20250414
  2. SIMVASTATIN [Concomitant]
     Active Substance: SIMVASTATIN
     Indication: Product used for unknown indication
     Route: 065
  3. ASPIRIN [Concomitant]
     Active Substance: ASPIRIN
     Indication: Product used for unknown indication
     Route: 065

REACTIONS (1)
  - Dacryocystitis [Recovered/Resolved]
